FAERS Safety Report 4592241-8 (Version None)
Quarter: 2005Q1

REPORT INFORMATION
  Report Type: 
  Country: None (occurrence: None)
  Receive Date: 20050228
  Receipt Date: 20041102
  Transmission Date: 20050727
  Serious: No
  Sender: FDA-Public Use
  Company Number: US-BRISTOL-MYERS SQUIBB COMPANY-12753984

PATIENT
  Age: 48 Year
  Sex: Female
  Weight: 118 kg

DRUGS (11)
  1. ABILIFY [Suspect]
     Indication: BIPOLAR DISORDER
     Dosage: INITIATED 10 MG/DAY SEVERAL YEARS AGO; DECREASED TO 5 MG/DAY EIGHT MONTHS AGO.
     Route: 048
  2. ABILIFY [Suspect]
     Indication: SCHIZOAFFECTIVE DISORDER
     Dosage: INITIATED 10 MG/DAY SEVERAL YEARS AGO; DECREASED TO 5 MG/DAY EIGHT MONTHS AGO.
     Route: 048
  3. ACCURETIC [Concomitant]
  4. ATROVENT [Concomitant]
  5. ALBUTEROL [Concomitant]
  6. ALLOPURINOL [Concomitant]
  7. ZYRTEC [Concomitant]
  8. LIPITOR [Concomitant]
  9. DIAZEPAM [Concomitant]
  10. NEURONTIN [Concomitant]
  11. PROZAC [Concomitant]

REACTIONS (1)
  - SOMNOLENCE [None]
